FAERS Safety Report 10901253 (Version 1)
Quarter: 2015Q1

REPORT INFORMATION
  Report Type: Report from Study
  Country: ZA (occurrence: ZA)
  Receive Date: 20150310
  Receipt Date: 20150310
  Transmission Date: 20150721
  Serious: Yes (Death)
  Sender: FDA-Public Use
  Company Number: PHHY2015ZA027308

PATIENT
  Age: 82 Year
  Sex: Female

DRUGS (1)
  1. EXFORGE [Suspect]
     Active Substance: AMLODIPINE BESYLATE\VALSARTAN
     Indication: HYPERTENSION
     Dosage: 1 DF, (VALSARTAN 160 MG, AMLODIPINE 5 MG),QD
     Route: 048
     Dates: start: 201212

REACTIONS (1)
  - Death [Fatal]

NARRATIVE: CASE EVENT DATE: 20150123
